FAERS Safety Report 6053194-9 (Version None)
Quarter: 2009Q1

REPORT INFORMATION
  Report Type: 
  Country: None (occurrence: None)
  Receive Date: 20090123
  Receipt Date: 20090115
  Transmission Date: 20090719
  Serious: Yes (Hospitalization, Other)
  Sender: FDA-Public Use
  Company Number: GXKR2009KR00781

PATIENT
  Age: 78 Year
  Sex: Female

DRUGS (2)
  1. CEFAZOLIN [Suspect]
     Indication: ADHESIOLYSIS
     Dosage: 1G EPIDURAL
     Route: 008
  2. OMNIPAQUE 140 [Suspect]
     Indication: ADHESIOLYSIS
     Dosage: 20 ML, EPIDURAL
     Route: 008

REACTIONS (6)
  - ANAESTHETIC COMPLICATION [None]
  - GRAND MAL CONVULSION [None]
  - HEADACHE [None]
  - LOSS OF CONSCIOUSNESS [None]
  - STATUS EPILEPTICUS [None]
  - STUPOR [None]
